FAERS Safety Report 17450817 (Version 1)
Quarter: 2020Q1

REPORT INFORMATION
  Report Type: Spontaneous
  Country: US (occurrence: US)
  Receive Date: 20200224
  Receipt Date: 20200224
  Transmission Date: 20200409
  Serious: No
  Sender: FDA-Public Use
  Company Number: US-JNJFOC-20200224663

PATIENT
  Sex: Female

DRUGS (2)
  1. CLOZARIL [Concomitant]
     Active Substance: CLOZAPINE
  2. SPRAVATO [Suspect]
     Active Substance: ESKETAMINE
     Indication: DEPRESSION

REACTIONS (1)
  - Pruritus [Recovered/Resolved]
